FAERS Safety Report 7689652-0 (Version None)
Quarter: 2011Q3

REPORT INFORMATION
  Report Type: 
  Country: None (occurrence: None)
  Receive Date: 20110817
  Receipt Date: 20110811
  Transmission Date: 20111222
  Serious: Yes (Life-Threatening, Hospitalization, Disabling)
  Sender: FDA-Public Use
  Company Number: CZ-ROCHE-796584

PATIENT
  Sex: Female

DRUGS (8)
  1. DIAZEPAM [Concomitant]
     Dates: start: 20100708
  2. XELODA [Suspect]
     Dosage: FREQUENCY: 4-0-3
     Route: 048
     Dates: start: 20100708
  3. DITHIADEN [Concomitant]
     Dates: start: 20100802
  4. DEXAMED [Concomitant]
     Dates: start: 20100708
  5. AVASTIN [Suspect]
     Route: 042
     Dates: start: 20100802
  6. CERUCAL [Concomitant]
     Dates: start: 20100708
  7. OXALIPLATIN [Suspect]
     Dosage: ELOXATIN
     Route: 065
     Dates: start: 20100708
  8. ZOFRAN [Concomitant]
     Dates: start: 20100708

REACTIONS (2)
  - VENTRICULAR FIBRILLATION [None]
  - CEREBRAL ISCHAEMIA [None]
